FAERS Safety Report 20818793 (Version 1)
Quarter: 2022Q2

REPORT INFORMATION
  Report Type: Spontaneous
  Country: US (occurrence: None)
  Receive Date: 20220511
  Receipt Date: 20220511
  Transmission Date: 20220721
  Serious: Yes (Hospitalization)
  Sender: FDA-Public Use
  Company Number: None

PATIENT
  Sex: Female

DRUGS (2)
  1. GAMMAGARD S/D [Suspect]
     Active Substance: HUMAN IMMUNOGLOBULIN G
     Indication: Polymyositis
     Dosage: 50 G 3 DAYS IN A ROW EVERY 4 WEEKS IV?
     Route: 042
     Dates: start: 20191215
  2. EPINEPHRINE [Suspect]
     Active Substance: EPINEPHRINE
     Indication: Polymyositis
     Dosage: 0.3 MG INTRAMUSCULAR
     Route: 030
     Dates: start: 202201

REACTIONS (3)
  - Fluid retention [None]
  - Cystitis [None]
  - Therapy interrupted [None]
